FAERS Safety Report 23872503 (Version 1)
Quarter: 2024Q2

REPORT INFORMATION
  Report Type: Spontaneous
  Country: CN (occurrence: CN)
  Receive Date: 20240520
  Receipt Date: 20240520
  Transmission Date: 20240715
  Serious: Yes (Life-Threatening, Other)
  Sender: FDA-Public Use
  Company Number: CN-SA-SAC20240516000603

PATIENT
  Age: 67 Year
  Sex: Male
  Weight: 80 kg

DRUGS (2)
  1. OXALIPLATIN [Suspect]
     Active Substance: OXALIPLATIN
     Indication: Chemotherapy
     Dosage: 220 MG, QD
     Route: 041
     Dates: start: 20240512, end: 20240512
  2. DEXTROSE [Concomitant]
     Active Substance: DEXTROSE\DEXTROSE MONOHYDRATE
     Indication: Chemotherapy
     Dosage: 500 ML
     Route: 041
     Dates: start: 20240512, end: 20240512

REACTIONS (13)
  - Urinary incontinence [Recovering/Resolving]
  - Electrocardiogram ST segment elevation [Recovering/Resolving]
  - Myocardial necrosis [Recovering/Resolving]
  - Cardio-respiratory arrest [Recovering/Resolving]
  - Electrocardiogram Q wave abnormal [Recovering/Resolving]
  - Myocardial injury [Recovering/Resolving]
  - Confusional state [Recovering/Resolving]
  - Chest discomfort [Recovering/Resolving]
  - Dyspnoea [Recovering/Resolving]
  - Nausea [Recovering/Resolving]
  - Anaphylactic shock [Recovering/Resolving]
  - Cold sweat [Recovering/Resolving]
  - Chest pain [Recovering/Resolving]

NARRATIVE: CASE EVENT DATE: 20240512
